FAERS Safety Report 8942480 (Version 1)
Quarter: 2012Q4

REPORT INFORMATION
  Report Type: 
  Country: US (occurrence: US)
  Receive Date: 20121204
  Receipt Date: 20121204
  Transmission Date: 20130627
  Serious: Yes (Other)
  Sender: FDA-Public Use
  Company Number: PHHY2012US103371

PATIENT
  Age: 78 Year
  Sex: Female

DRUGS (1)
  1. GENTEAL GEL [Suspect]
     Indication: DRY EYE
     Dosage: UNK
     Dates: end: 20121008

REACTIONS (3)
  - Eye irritation [Recovered/Resolved]
  - Ocular hyperaemia [Recovering/Resolving]
  - Product odour abnormal [Unknown]
